FAERS Safety Report 7527418-2 (Version None)
Quarter: 2011Q2

REPORT INFORMATION
  Report Type: 
  Country: None (occurrence: None)
  Receive Date: 20110607
  Receipt Date: 20110529
  Transmission Date: 20111010
  Serious: Yes (Hospitalization)
  Sender: FDA-Public Use
  Company Number: US-JNJFOC-20070803148

PATIENT
  Age: 60 Year
  Sex: Female

DRUGS (9)
  1. FAMOTIDINE [Suspect]
     Indication: PRODUCT USED FOR UNKNOWN INDICATION
  2. DEXAMETHASONE [Concomitant]
  3. ALBUTEROL SULFATE AUTOHALER [Concomitant]
  4. PROZAC [Concomitant]
  5. THEOPHYLLINE [Concomitant]
  6. FAMOTIDINE [Suspect]
  7. DILTIAZEM [Concomitant]
  8. PERCOCET [Concomitant]
  9. CIPROFLOXACIN [Concomitant]

REACTIONS (1)
  - ACUTE GENERALISED EXANTHEMATOUS PUSTULOSIS [None]
